FAERS Safety Report 5106661-6 (Version None)
Quarter: 2006Q3

REPORT INFORMATION
  Report Type: 
  Country: None (occurrence: None)
  Receive Date: 20060918
  Receipt Date: 20060628
  Transmission Date: 20061208
  Serious: Yes (Death)
  Sender: FDA-Public Use
  Company Number: US-AMGEN-US184899

PATIENT
  Sex: Male

DRUGS (1)
  1. PROCRIT [Suspect]
     Indication: ANAEMIA
     Route: 065

REACTIONS (2)
  - DEATH [None]
  - REFUSAL OF TREATMENT BY PATIENT [None]
